FAERS Safety Report 12235233 (Version 2)
Quarter: 2016Q2

REPORT INFORMATION
  Report Type: Spontaneous
  Country: NL (occurrence: NL)
  Receive Date: 20160404
  Receipt Date: 20160509
  Transmission Date: 20160815
  Serious: Yes (Other)
  Sender: FDA-Public Use
  Company Number: NL-PFIZER INC-2016145265

PATIENT
  Age: 65 Year
  Sex: Female
  Weight: 92 kg

DRUGS (4)
  1. LETROZOL [Concomitant]
     Active Substance: LETROZOLE
     Dosage: 2.5 MG, 1X/DAY
  2. SOMAVERT [Suspect]
     Active Substance: PEGVISOMANT
     Indication: ACROMEGALY
     Dosage: 60 MG, WEEKLY (1X/WEEK)
     Route: 058
     Dates: start: 20160307
  3. LANREOTIDE [Concomitant]
     Active Substance: LANREOTIDE
     Dosage: 300 MG/ML
  4. COLECALCIFEROL [Concomitant]
     Active Substance: CHOLECALCIFEROL
     Dosage: 1 DF, 1X/DAY

REACTIONS (4)
  - Off label use [Unknown]
  - Pharyngitis [Recovering/Resolving]
  - Ear infection [Recovered/Resolved]
  - Eye infection [Recovering/Resolving]

NARRATIVE: CASE EVENT DATE: 201603
